FAERS Safety Report 13098527 (Version 1)
Quarter: 2017Q1

REPORT INFORMATION
  Report Type: Spontaneous
  Country: US (occurrence: US)
  Receive Date: 20170109
  Receipt Date: 20170109
  Transmission Date: 20170428
  Serious: No
  Sender: FDA-Public Use
  Company Number: US-CELGENEUS-USA-2016118766

PATIENT
  Sex: Female
  Weight: 63.11 kg

DRUGS (1)
  1. POMALYST [Suspect]
     Active Substance: POMALIDOMIDE
     Indication: PLASMA CELL MYELOMA
     Dosage: 2MG
     Route: 048
     Dates: start: 20160818

REACTIONS (5)
  - Dyspnoea [Unknown]
  - Nasopharyngitis [Unknown]
  - Blood pressure increased [Unknown]
  - Heart rate increased [Unknown]
  - Sinusitis [Unknown]
